FAERS Safety Report 6489640-6 (Version None)
Quarter: 2009Q4

REPORT INFORMATION
  Report Type: 
  Country: None (occurrence: None)
  Receive Date: 20091207
  Receipt Date: 20091123
  Transmission Date: 20100525
  Serious: Yes (Death, Hospitalization)
  Sender: FDA-Public Use
  Company Number: 2009AC000210

PATIENT
  Age: 72 Year
  Sex: Female

DRUGS (19)
  1. DIGOXIN [Suspect]
     Dosage: 0.125 MG;QD;PO
     Route: 048
     Dates: end: 20080507
  2. PRAZOSIN HYDROCHLORIDE [Concomitant]
  3. LASIX [Concomitant]
  4. GLUCOTROL [Concomitant]
  5. DEXAMETHASONE TAB [Concomitant]
  6. AMLODIPINE [Concomitant]
  7. SYNTHROID [Concomitant]
  8. BISOPROLOL [Concomitant]
  9. MICARDIS [Concomitant]
  10. CALTRATE [Concomitant]
  11. ASPIRIN [Concomitant]
  12. IRON [Concomitant]
  13. TRICOR [Concomitant]
  14. CRESTOR [Concomitant]
  15. ZETIA [Concomitant]
  16. LEVEMIR [Concomitant]
  17. NOVOLOG [Concomitant]
  18. FABALN PLUS [Concomitant]
  19. CLONIDINE [Concomitant]

REACTIONS (23)
  - ADRENAL INSUFFICIENCY [None]
  - ANHEDONIA [None]
  - ARTHRITIS [None]
  - ATRIOVENTRICULAR BLOCK FIRST DEGREE [None]
  - BASEDOW'S DISEASE [None]
  - BLOOD PRESSURE INCREASED [None]
  - BRONCHITIS [None]
  - BUNDLE BRANCH BLOCK LEFT [None]
  - CARDIAC FAILURE CONGESTIVE [None]
  - COMA [None]
  - DIABETES MELLITUS INADEQUATE CONTROL [None]
  - ECONOMIC PROBLEM [None]
  - HYPOGLYCAEMIA [None]
  - HYPOPITUITARISM [None]
  - HYPOTHYROIDISM [None]
  - INJURY [None]
  - MENTAL DISORDER [None]
  - PAIN [None]
  - PITUITARY-DEPENDENT CUSHING'S SYNDROME [None]
  - RENAL FAILURE [None]
  - SOCIAL PROBLEM [None]
  - SURGERY [None]
  - SYNOVITIS [None]
